FAERS Safety Report 9122012 (Version 1)
Quarter: 2013Q1

REPORT INFORMATION
  Report Type: Spontaneous
  Country: US (occurrence: US)
  Receive Date: 20130114
  Receipt Date: 20130114
  Transmission Date: 20140127
  Serious: Yes (Life-Threatening)
  Sender: FDA-Public Use
  Company Number: US-009507513-1301USA003664

PATIENT
  Age: 4 Year
  Sex: Male

DRUGS (1)
  1. SINGULAIR [Suspect]
     Indication: ASTHMA
     Dosage: 4 MG, QD
     Route: 048

REACTIONS (7)
  - Insomnia [Unknown]
  - Unevaluable event [Unknown]
  - Mood swings [Unknown]
  - Anxiety [Unknown]
  - Anger [Unknown]
  - Agitation [Unknown]
  - Aggression [Unknown]
